FAERS Safety Report 24137141 (Version 3)
Quarter: 2024Q3

REPORT INFORMATION
  Report Type: Spontaneous
  Country: US (occurrence: US)
  Receive Date: 20240725
  Receipt Date: 20240731
  Transmission Date: 20241017
  Serious: No
  Sender: ABBVIE
  Company Number: US-ABBVIE-5849547

PATIENT

DRUGS (1)
  1. ARMOUR THYROID [Suspect]
     Active Substance: THYROID, PORCINE
     Indication: Hypothyroidism
     Dosage: START DATE A COUPLE OF YEARS AGO
     Route: 048

REACTIONS (5)
  - Pain [Unknown]
  - Hot flush [Unknown]
  - Nausea [Unknown]
  - Back pain [Not Recovered/Not Resolved]
  - Product colour issue [Unknown]
